FAERS Safety Report 4810251-X (Version None)
Quarter: 2005Q4

REPORT INFORMATION
  Report Type: 
  Country: None (occurrence: None)
  Receive Date: 20051026
  Receipt Date: 20051013
  Transmission Date: 20060501
  Serious: Yes (Hospitalization)
  Sender: FDA-Public Use
  Company Number: FR-GLAXOSMITHKLINE-B0398143A

PATIENT
  Age: 82 Year
  Sex: Male

DRUGS (9)
  1. AUGMENTIN '125' [Suspect]
     Dosage: 1G THREE TIMES PER DAY
     Route: 048
     Dates: start: 20050916
  2. PREVISCAN [Suspect]
     Dosage: 15MG PER DAY
     Route: 048
     Dates: end: 20051003
  3. DIGOXIN [Concomitant]
     Dosage: 1UNIT PER DAY
     Route: 048
  4. LASILIX [Concomitant]
     Dosage: 40MG PER DAY
     Route: 048
  5. NOCTRAN [Concomitant]
     Dosage: 5MG PER DAY
     Route: 048
     Dates: start: 20050918, end: 20051003
  6. SOLU-MEDROL [Concomitant]
     Dosage: 20MG PER DAY
     Route: 048
     Dates: start: 20050916
  7. DOLIPRANE [Concomitant]
     Route: 048
     Dates: start: 20050918, end: 20051003
  8. DURAGESIC-100 [Concomitant]
     Route: 065
  9. RENUTRYL [Concomitant]
     Route: 065

REACTIONS (3)
  - COAGULOPATHY [None]
  - DRUG INTERACTION [None]
  - INTERNATIONAL NORMALISED RATIO INCREASED [None]
